FAERS Safety Report 9660911 (Version 3)
Quarter: 2013Q4

REPORT INFORMATION
  Report Type: Report from Study
  Country: DE (occurrence: DE)
  Receive Date: 20131031
  Receipt Date: 20131104
  Transmission Date: 20140711
  Serious: Yes (Hospitalization, Other)
  Sender: FDA-Public Use
  Company Number: DE-SA-THYM-1003400

PATIENT
  Sex: Male
  Weight: 54 kg

DRUGS (20)
  1. ANTI-THYMOCYTE GLOBULIN (RABBIT) [Suspect]
     Indication: IMMUNOSUPPRESSION
     Dosage: 20 MG, QD
     Route: 042
     Dates: start: 20120714
  2. TACROLIMUS [Suspect]
     Indication: IMMUNOSUPPRESSION
     Route: 048
     Dates: start: 20120714
  3. TACROLIMUS [Suspect]
     Indication: IMMUNOSUPPRESSION
     Route: 048
     Dates: start: 20120917, end: 20120920
  4. MYCOPHENOLATE MOFETIL [Suspect]
     Indication: IMMUNOSUPPRESSION
     Dosage: 1000 MG, BID
     Route: 048
     Dates: start: 20120714
  5. MYCOPHENOLATE MOFETIL [Suspect]
     Indication: IMMUNOSUPPRESSION
     Route: 048
     Dates: start: 20130513
  6. MYCOPHENOLATE MOFETIL [Suspect]
     Indication: IMMUNOSUPPRESSION
     Dosage: 250 MG, BID
     Route: 048
     Dates: start: 20120912, end: 20121010
  7. DECORTIN-H [Suspect]
     Indication: IMMUNOSUPPRESSION
     Route: 048
     Dates: start: 20120915
  8. DECORTIN-H [Suspect]
     Indication: IMMUNOSUPPRESSION
     Route: 048
  9. DECORTIN-H [Suspect]
     Indication: IMMUNOSUPPRESSION
     Dosage: 25 MG, QD
     Route: 048
     Dates: start: 20120714
  10. RAMIPRIL [Concomitant]
     Dosage: 5 MG, QD
     Dates: start: 201208
  11. VALCYTE [Concomitant]
     Dosage: 450 MG, 3X/W
     Dates: start: 20120718, end: 201210
  12. AMPHOTERICIN B [Concomitant]
     Dosage: 600 MG, QD
  13. CARMEN [Concomitant]
     Dosage: 20 MG, QD
     Dates: start: 20120722
  14. PANTOZOL [Concomitant]
     Dosage: 40 MG, QD
     Dates: start: 20120715
  15. ROCALTROL [Concomitant]
     Dosage: 0.25 MG, QD
  16. DELIX [Concomitant]
     Dosage: 25 MG, UNK
     Dates: start: 20120828, end: 201209
  17. DELIX [Concomitant]
     Dates: start: 201208, end: 20120827
  18. KEPINOL [Concomitant]
     Dosage: 480 MG, 3X/W
     Dates: start: 20120716, end: 20120828
  19. KEPINOL [Concomitant]
     Dates: start: 20120830, end: 20121102
  20. CALCITRIOL [Concomitant]
     Dosage: 0.85 MCG, UNK
     Dates: start: 20120716

REACTIONS (6)
  - Transplant failure [Unknown]
  - Complications of transplanted kidney [Unknown]
  - Fluid retention [Unknown]
  - Complications of transplanted kidney [Recovered/Resolved]
  - Polyomavirus-associated nephropathy [Recovered/Resolved]
  - BK virus infection [Recovered/Resolved]
